FAERS Safety Report 19814849 (Version 1)
Quarter: 2021Q3

REPORT INFORMATION
  Report Type: Spontaneous
  Country: US (occurrence: US)
  Receive Date: 20210910
  Receipt Date: 20210910
  Transmission Date: 20211014
  Serious: Yes (Hospitalization)
  Sender: FDA-Public Use
  Company Number: None

PATIENT
  Age: 56 Year
  Sex: Male
  Weight: 90.7 kg

DRUGS (1)
  1. VANCOMYCIN [Suspect]
     Active Substance: VANCOMYCIN
     Indication: URINARY TRACT INFECTION
     Route: 042
     Dates: start: 20210824, end: 20210901

REACTIONS (3)
  - Blood creatinine increased [None]
  - Feeling abnormal [None]
  - Tremor [None]

NARRATIVE: CASE EVENT DATE: 20210901
